FAERS Safety Report 6279596-3 (Version None)
Quarter: 2009Q3

REPORT INFORMATION
  Report Type: 
  Country: None (occurrence: None)
  Receive Date: 20090723
  Receipt Date: 20090714
  Transmission Date: 20100115
  Serious: Yes (Death, Hospitalization, Other)
  Sender: FDA-Public Use
  Company Number: A0798046A

PATIENT
  Sex: Female

DRUGS (1)
  1. SERETIDE [Suspect]
     Indication: PNEUMONIA
     Route: 055
     Dates: start: 20081001, end: 20090409

REACTIONS (2)
  - CARDIAC ARREST [None]
  - PRODUCTIVE COUGH [None]
